FAERS Safety Report 15353386 (Version 4)
Quarter: 2022Q1

REPORT INFORMATION
  Report Type: Spontaneous
  Country: US (occurrence: US)
  Receive Date: 20180905
  Receipt Date: 20220330
  Transmission Date: 20220423
  Serious: Yes (Hospitalization, Other)
  Sender: FDA-Public Use
  Company Number: US-BIOMARINAP-US-2018-119682

PATIENT
  Age: 29 Year
  Sex: Male

DRUGS (2)
  1. LARONIDASE [Suspect]
     Active Substance: LARONIDASE
     Indication: Mucopolysaccharidosis I
     Dosage: UNK
     Route: 065
     Dates: start: 2003
  2. LARONIDASE [Suspect]
     Active Substance: LARONIDASE
     Dosage: 43.5, QW
     Route: 041
     Dates: start: 20090421

REACTIONS (5)
  - Bone cyst [Recovered/Resolved]
  - Infection [Recovered/Resolved]
  - Illness [Recovering/Resolving]
  - Pain [Recovering/Resolving]
  - Headache [Recovering/Resolving]

NARRATIVE: CASE EVENT DATE: 20220123
